FAERS Safety Report 4954191-4 (Version None)
Quarter: 2006Q1

REPORT INFORMATION
  Report Type: 
  Country: None (occurrence: None)
  Receive Date: 20060327
  Receipt Date: 20051013
  Transmission Date: 20060701
  Serious: Yes (Hospitalization, Other)
  Sender: FDA-Public Use
  Company Number: US-MERCK-0510USA07390

PATIENT
  Age: 79 Year
  Sex: Female
  Weight: 55 kg

DRUGS (4)
  1. VIOXX [Suspect]
     Indication: ARTHRALGIA
     Route: 048
     Dates: start: 20000101, end: 20010101
  2. WELLBUTRIN [Concomitant]
     Route: 065
  3. ABILIFY [Concomitant]
     Route: 065
  4. EXELON [Concomitant]
     Route: 065

REACTIONS (7)
  - ALCOHOL DETOXIFICATION [None]
  - ALCOHOLISM [None]
  - CEREBROVASCULAR ACCIDENT [None]
  - COGNITIVE DISORDER [None]
  - DYSARTHRIA [None]
  - HYPERTENSION [None]
  - MEMORY IMPAIRMENT [None]
